FAERS Safety Report 7917826-X (Version None)
Quarter: 2011Q4

REPORT INFORMATION
  Report Type: 
  Country: None (occurrence: None)
  Receive Date: 20111116
  Receipt Date: 20111103
  Transmission Date: 20120403
  Serious: Yes (Other)
  Sender: FDA-Public Use
  Company Number: PHHY2011US97048

PATIENT
  Age: 78 Year
  Sex: Male

DRUGS (5)
  1. MYCOPHENOLIC ACID [Suspect]
     Indication: MYASTHENIA GRAVIS
  2. DORZOLAMIDE [Concomitant]
  3. PYRIDOSTIGMINE BROMIDE [Concomitant]
     Route: 047
  4. TIMOLOL MALEATE [Concomitant]
     Route: 047
  5. FLUOROMETHOLONE [Concomitant]
     Route: 047

REACTIONS (27)
  - PYREXIA [None]
  - NIGHT SWEATS [None]
  - ERYTHEMA [None]
  - EYE INFLAMMATION [None]
  - HYPERKALAEMIA [None]
  - ADRENAL CORTEX NECROSIS [None]
  - FATIGUE [None]
  - MALAISE [None]
  - DRY MOUTH [None]
  - DYSPNOEA EXERTIONAL [None]
  - ADRENAL MASS [None]
  - VISION BLURRED [None]
  - VITRITIS [None]
  - ATELECTASIS [None]
  - CHILLS [None]
  - EYE PAIN [None]
  - EYEBALL RUPTURE [None]
  - HISTOPLASMOSIS [None]
  - DECREASED APPETITE [None]
  - WEIGHT DECREASED [None]
  - VOMITING [None]
  - BLINDNESS [None]
  - DIZZINESS [None]
  - NAUSEA [None]
  - KERATORHEXIS [None]
  - ASTHENIA [None]
  - COUGH [None]
